FAERS Safety Report 9885129 (Version 1)
Quarter: 2014Q1

REPORT INFORMATION
  Report Type: Not Available
  Country: FR (occurrence: FR)
  Receive Date: 20140210
  Receipt Date: 20140210
  Transmission Date: 20141002
  Serious: Yes (Hospitalization)
  Sender: FDA-Public Use
  Company Number: FR-BEH-2014040525

PATIENT
  Age: 83 Year
  Sex: Male

DRUGS (7)
  1. PRIVIGEN [Suspect]
     Indication: GUILLAIN-BARRE SYNDROME
     Route: 042
     Dates: start: 20131214, end: 20131217
  2. LASILIX [Concomitant]
  3. SINEMET [Concomitant]
     Dosage: 4/D
  4. PREVISCAN [Concomitant]
  5. INEXIUM [Concomitant]
  6. RENVELA [Concomitant]
     Dosage: 3 SACHETS/D
  7. CALCIPARINE [Concomitant]
     Indication: LUMBAR PUNCTURE
     Dates: start: 20131218, end: 20131218

REACTIONS (1)
  - Epilepsy [Not Recovered/Not Resolved]
